FAERS Safety Report 16623318 (Version 1)
Quarter: 2019Q3

REPORT INFORMATION
  Report Type: Spontaneous
  Country: PL (occurrence: PL)
  Receive Date: 20190723
  Receipt Date: 20190723
  Transmission Date: 20191004
  Serious: Yes (Other)
  Sender: FDA-Public Use
  Company Number: PL-ELI_LILLY_AND_COMPANY-PL201907008986

PATIENT
  Sex: Female

DRUGS (1)
  1. HUMALOG MIX50/50 [Suspect]
     Active Substance: INSULIN LISPRO
     Indication: TYPE 2 DIABETES MELLITUS
     Dosage: 30 U, TID
     Route: 065
     Dates: start: 2009

REACTIONS (2)
  - Cerebrovascular accident [Unknown]
  - Incorrect dose administered [Unknown]
